FAERS Safety Report 7218644 (Version 6)
Quarter: 2013Q3

REPORT INFORMATION
  Report Type: Report from Study
  Country: US (occurrence: US)
  Receive Date: 20091215
  Receipt Date: 20130729
  Transmission Date: 20140515
  Serious: Yes (Hospitalization)
  Sender: FDA-Public Use
  Company Number: US-JNJFOC-20091202333

PATIENT
  Age: 11 Year
  Sex: Male
  Weight: 27.9 kg

DRUGS (7)
  1. INFLIXIMAB [Suspect]
     Indication: INFLAMMATORY BOWEL DISEASE
     Route: 042
     Dates: start: 20090417
  2. CYANOCOBALAMIN [Concomitant]
  3. ANTIBIOTICS [Concomitant]
     Indication: INFLAMMATORY BOWEL DISEASE
  4. FISH OIL [Concomitant]
  5. VITAMIN C [Concomitant]
  6. MULTIVITAMINS [Concomitant]
  7. NEXIUM [Concomitant]

REACTIONS (2)
  - Perirectal abscess [Recovered/Resolved]
  - Perirectal abscess [Recovered/Resolved]
